FAERS Safety Report 13076342 (Version 2)
Quarter: 2017Q1

REPORT INFORMATION
  Report Type: Report from Study
  Country: IL (occurrence: IL)
  Receive Date: 20161230
  Receipt Date: 20170105
  Transmission Date: 20170428
  Serious: No
  Sender: FDA-Public Use
  Company Number: IL-JNJFOC-20160623725

PATIENT
  Sex: Female

DRUGS (3)
  1. STELARA [Suspect]
     Active Substance: USTEKINUMAB
     Indication: PSORIASIS
     Route: 058
     Dates: start: 20150330, end: 20161003
  2. ACAMOL [Concomitant]
     Active Substance: ACETAMINOPHEN
     Route: 065
  3. OPTALGIN [Concomitant]
     Active Substance: METAMIZOLE
     Route: 065

REACTIONS (8)
  - Alopecia [Recovering/Resolving]
  - Pain in extremity [Recovering/Resolving]
  - Drug dose omission [Unknown]
  - Asthenia [Not Recovered/Not Resolved]
  - Drug ineffective [Unknown]
  - Back pain [Recovering/Resolving]
  - Arthralgia [Recovering/Resolving]
  - Pain [Not Recovered/Not Resolved]

NARRATIVE: CASE EVENT DATE: 2015
